FAERS Safety Report 19841284 (Version 3)
Quarter: 2021Q4

REPORT INFORMATION
  Report Type: Report from Study
  Country: IT (occurrence: IT)
  Receive Date: 20210915
  Receipt Date: 20211215
  Transmission Date: 20220303
  Serious: Yes (Life-Threatening, Hospitalization, Other)
  Sender: FDA-Public Use
  Company Number: IT-002147023-NVSC2021IT206666

PATIENT

DRUGS (4)
  1. RUXOLITINIB [Suspect]
     Active Substance: RUXOLITINIB
     Indication: Primary myelofibrosis
     Dosage: 10 MG, BID
     Route: 048
     Dates: start: 20210826
  2. NAVITOCLAX [Suspect]
     Active Substance: NAVITOCLAX
     Indication: Primary myelofibrosis
     Dosage: (200 MG,1 IN 1 D)
     Route: 048
     Dates: start: 20210826
  3. FUROSEMIDE [Concomitant]
     Active Substance: FUROSEMIDE
     Indication: Polyuria
     Dosage: 25 MG (25 MG,1 IN 1D)
     Route: 048
     Dates: start: 20210816
  4. LAMIVUDINE [Concomitant]
     Active Substance: LAMIVUDINE
     Indication: Product used for unknown indication
     Dosage: (1 IN 1 D)
     Route: 065
     Dates: start: 20210816, end: 20210830

REACTIONS (13)
  - Acute kidney injury [Unknown]
  - Asthenia [Unknown]
  - Platelet count decreased [Unknown]
  - Dysuria [Unknown]
  - Pyrexia [Unknown]
  - Hypocalcaemia [Unknown]
  - Hypokalaemia [Unknown]
  - Blood phosphorus increased [Recovering/Resolving]
  - Blood uric acid increased [Unknown]
  - Lithiasis [Unknown]
  - Tumour lysis syndrome [Recovered/Resolved]
  - Urinary tract infection [Not Recovered/Not Resolved]
  - Urosepsis [Recovered/Resolved]

NARRATIVE: CASE EVENT DATE: 20210830
